FAERS Safety Report 4644980-8 (Version None)
Quarter: 2005Q2

REPORT INFORMATION
  Report Type: 
  Country: None (occurrence: None)
  Receive Date: 20050426
  Receipt Date: 20050323
  Transmission Date: 20051028
  Serious: Yes (Other)
  Sender: FDA-Public Use
  Company Number: PHFR2005GB01323

PATIENT
  Age: 8 Year
  Sex: Female

DRUGS (3)
  1. TEGRETOL [Suspect]
     Indication: EPILEPSY
     Dosage: UNK, UNK
     Route: 048
     Dates: start: 20020101, end: 20050301
  2. MOVICOL [Concomitant]
     Indication: CONSTIPATION
     Dosage: 1 SACHET
     Route: 048
     Dates: start: 20031101
  3. RANITIDINE [Concomitant]
     Indication: GASTRITIS
     Dates: start: 19990701, end: 20031101

REACTIONS (5)
  - APNOEIC ATTACK [None]
  - BRADYCARDIA [None]
  - CYANOSIS [None]
  - ELECTROCARDIOGRAM QT PROLONGED [None]
  - TACHYCARDIA [None]
